FAERS Safety Report 10543730 (Version 1)
Quarter: 2014Q4

REPORT INFORMATION
  Report Type: Spontaneous
  Country: US (occurrence: None)
  Receive Date: 20141010
  Receipt Date: 20141010
  Transmission Date: 20150529
  Serious: No
  Sender: FDA-Public Use
  Company Number: 163-POMAL-14064886

PATIENT
  Sex: Male
  Weight: 62.6 kg

DRUGS (7)
  1. DEXAMETHASONE (DEXAMETHASONE) [Concomitant]
     Active Substance: DEXAMETHASONE
  2. BACTRIM DS (BACTRIM) [Concomitant]
  3. CALCIUM CARBONATE (CALCUM CARBONATE) [Concomitant]
  4. PRILOSEC (OMEPRAZOLE) [Concomitant]
     Active Substance: OMEPRAZOLE MAGNESIUM
  5. POMALYST [Suspect]
     Active Substance: POMALIDOMIDE
     Indication: PLASMA CELL MYELOMA
     Dosage: 4 MG, 21 IN 28 D, PO
     Route: 048
     Dates: start: 20140527
  6. MULTIVITAMINS (MULTIVITAMINS) [Concomitant]
     Active Substance: VITAMINS
  7. VIAMIN D (ERGOCACLCIFEROL) [Concomitant]

REACTIONS (3)
  - Hostility [None]
  - Aggression [None]
  - Body height decreased [None]
